FAERS Safety Report 6771671-X (Version None)
Quarter: 2010Q2

REPORT INFORMATION
  Report Type: 
  Country: None (occurrence: None)
  Receive Date: 20100616
  Receipt Date: 20100604
  Transmission Date: 20101027
  Serious: Yes (Hospitalization)
  Sender: FDA-Public Use
  Company Number: ES-ELI_LILLY_AND_COMPANY-ES201006001554

PATIENT
  Sex: Male
  Weight: 49.75 kg

DRUGS (11)
  1. FORTEO [Suspect]
     Indication: OSTEOPOROSIS
     Dosage: 20 UG, DAILY (1/D)
     Route: 058
     Dates: start: 20100301
  2. KALETRA [Concomitant]
     Dosage: 100 MG, 2/D (AT LUNCH AND IN THE EVENING)
     Route: 048
  3. KIVEXA [Concomitant]
     Dosage: 600 MG, DAILY (1/D)
     Route: 048
  4. SEPTRIN [Concomitant]
     Indication: INFECTION
     Dosage: 400 MG, 3/W
     Route: 048
  5. LEDERFOLIN [Concomitant]
     Dosage: 15 MG, 3/W
     Route: 048
  6. DIAZEPAM [Concomitant]
     Indication: PAIN
     Dosage: UNK, DAILY (1/D)
     Route: 048
  7. MYOLASTAN [Concomitant]
     Indication: INFLAMMATION
     Dosage: UNK, DAILY (1/D)
     Route: 048
  8. TORSEMIDE [Concomitant]
     Dosage: UNK, DAILY (1/D)
     Route: 048
  9. BOI K [Concomitant]
     Dosage: UNK, DAILY (1/D)
     Route: 048
  10. VADITON PROLIB [Concomitant]
     Indication: HYPERCHOLESTEROLAEMIA
     Dosage: 80 MG, DAILY (1/D)
     Route: 048
  11. INALADUO [Concomitant]
     Indication: ASTHMA
     Dosage: UNK, AS NEEDED
     Route: 055

REACTIONS (2)
  - HAEMOPTYSIS [None]
  - LUNG NEOPLASM MALIGNANT [None]
